FAERS Safety Report 9644705 (Version 1)
Quarter: 2013Q4

REPORT INFORMATION
  Report Type: Report from Study
  Country: US (occurrence: US)
  Receive Date: 20131025
  Receipt Date: 20131025
  Transmission Date: 20140711
  Serious: Yes (Hospitalization)
  Sender: FDA-Public Use
  Company Number: US-JNJFOC-20131011042

PATIENT
  Age: 50 Year
  Sex: Female
  Weight: 112.49 kg

DRUGS (9)
  1. REMICADE [Suspect]
     Indication: CROHN^S DISEASE
     Route: 042
     Dates: start: 201309
  2. REMICADE [Suspect]
     Indication: CROHN^S DISEASE
     Route: 042
     Dates: start: 20121216
  3. REMICADE [Suspect]
     Indication: CROHN^S DISEASE
     Route: 042
     Dates: start: 201208
  4. POTASSIUM [Concomitant]
     Indication: BLOOD POTASSIUM DECREASED
     Route: 048
     Dates: start: 2012
  5. NORVASC [Concomitant]
     Indication: BLOOD PRESSURE
     Route: 048
     Dates: start: 2010
  6. NEXIUM [Concomitant]
     Indication: GASTRIC ULCER
     Route: 048
     Dates: start: 2010
  7. TYLENOL [Concomitant]
     Indication: HEADACHE
     Route: 065
     Dates: start: 2012
  8. TRAMADOL [Concomitant]
     Indication: ARTHRALGIA
     Route: 048
     Dates: start: 201209
  9. CELEBREX [Concomitant]
     Indication: ARTHRALGIA
     Route: 048

REACTIONS (11)
  - Small intestinal stenosis [Recovered/Resolved]
  - Wound [Recovered/Resolved]
  - Abdominal hernia [Recovered/Resolved]
  - Abdominal wall abscess [Recovered/Resolved]
  - Mycobacterium tuberculosis complex test positive [Not Recovered/Not Resolved]
  - Infusion related reaction [Recovered/Resolved]
  - Micturition urgency [Recovered/Resolved]
  - Frequent bowel movements [Recovered/Resolved]
  - Dizziness [Recovered/Resolved]
  - Nausea [Recovered/Resolved]
  - Hyperhidrosis [Recovered/Resolved]
